FAERS Safety Report 8817439 (Version 1)
Quarter: 2012Q4

REPORT INFORMATION
  Report Type: 
  Country: NL (occurrence: NL)
  Receive Date: 20121001
  Receipt Date: 20121001
  Transmission Date: 20130627
  Serious: Yes (Other)
  Sender: FDA-Public Use
  Company Number: NL-ASTELLAS-2011EU009370

PATIENT
  Sex: Male

DRUGS (3)
  1. VESICARE [Suspect]
     Indication: HYPERTONIC BLADDER
     Dosage: 10 mg, Unknown/D
     Route: 065
     Dates: start: 20110106, end: 20110306
  2. VESICARE [Suspect]
     Indication: MICTURITION URGENCY
  3. TAMSULOSIN [Concomitant]
     Indication: DYSURIA
     Dosage: UNK
     Route: 065

REACTIONS (1)
  - Dysuria [Unknown]
